FAERS Safety Report 16555893 (Version 3)
Quarter: 2019Q3

REPORT INFORMATION
  Report Type: Spontaneous
  Country: AT (occurrence: AT)
  Receive Date: 20190710
  Receipt Date: 20190815
  Transmission Date: 20191004
  Serious: Yes (Disabling)
  Sender: FDA-Public Use
  Company Number: AT-ALLERGAN-1927915US

PATIENT
  Sex: Male

DRUGS (1)
  1. TRIPTORELIN PAMOATE - BP [Suspect]
     Active Substance: TRIPTORELIN PAMOATE
     Indication: PROSTATE CANCER
     Dosage: 11.25 MG, ONCE IN THREE MONTHS
     Route: 058
     Dates: start: 20190301

REACTIONS (3)
  - Abdominal pain [Recovered/Resolved]
  - Injection site pain [Recovered/Resolved]
  - Circulatory collapse [Recovered/Resolved]

NARRATIVE: CASE EVENT DATE: 20190604
